FAERS Safety Report 24977475 (Version 1)
Quarter: 2025Q1

REPORT INFORMATION
  Report Type: Spontaneous
  Country: US (occurrence: US)
  Receive Date: 20250217
  Receipt Date: 20250217
  Transmission Date: 20250409
  Serious: No
  Sender: ELI LILLY AND COMPANY
  Company Number: US-ELI_LILLY_AND_COMPANY-US202502010812

PATIENT
  Age: 38 Year
  Sex: Female

DRUGS (1)
  1. VERZENIO [Suspect]
     Active Substance: ABEMACICLIB
     Indication: Breast cancer female
     Dosage: 100 MG, BID
     Route: 048

REACTIONS (7)
  - Hot flush [Unknown]
  - Pain in extremity [Recovered/Resolved]
  - Back pain [Recovering/Resolving]
  - Dyspnoea [Unknown]
  - Arthralgia [Recovered/Resolved]
  - Fatigue [Unknown]
  - Neutropenia [Recovering/Resolving]
